FAERS Safety Report 9154431 (Version 1)
Quarter: 2013Q1

REPORT INFORMATION
  Report Type: Spontaneous
  Country: JP (occurrence: JP)
  Receive Date: 20130311
  Receipt Date: 20130311
  Transmission Date: 20140127
  Serious: Yes (Other)
  Sender: FDA-Public Use
  Company Number: JP-ELI_LILLY_AND_COMPANY-JP201212007990

PATIENT
  Age: 50 None
  Sex: Female
  Weight: 48 kg

DRUGS (6)
  1. ALIMTA [Suspect]
     Indication: LUNG ADENOCARCINOMA STAGE IV
     Dosage: 700 MG, UNK
     Route: 042
     Dates: start: 20121210, end: 20121210
  2. PARAPLATIN [Concomitant]
     Indication: LUNG ADENOCARCINOMA STAGE IV
     Dosage: 500 MG, UNK
     Route: 042
     Dates: start: 20121210, end: 20130123
  3. AVASTIN [Concomitant]
     Indication: LUNG ADENOCARCINOMA STAGE IV
     Dosage: 700 MG, UNK
     Route: 042
     Dates: start: 20121210, end: 20121210
  4. IRESSA [Concomitant]
     Indication: LUNG ADENOCARCINOMA STAGE IV
     Dosage: 250 MG, UNK
     Route: 048
     Dates: start: 20120131, end: 20121216
  5. HITOCOBAMIN M [Concomitant]
     Indication: PROPHYLAXIS
     Dosage: 500 UG, UNK
     Route: 030
     Dates: start: 20121203, end: 20121203
  6. FOLIAMIN [Concomitant]
     Indication: PROPHYLAXIS
     Dosage: 0.5 MG, QD
     Route: 048
     Dates: start: 20121203, end: 20121209

REACTIONS (6)
  - Liver disorder [Not Recovered/Not Resolved]
  - Neutrophil count decreased [Unknown]
  - Erythema [Recovering/Resolving]
  - Malaise [Recovering/Resolving]
  - Nausea [Recovering/Resolving]
  - Pyrexia [Recovering/Resolving]
